FAERS Safety Report 25348395 (Version 4)
Quarter: 2025Q4

REPORT INFORMATION
  Report Type: Spontaneous
  Country: JP (occurrence: JP)
  Receive Date: 20250522
  Receipt Date: 20251017
  Transmission Date: 20260117
  Serious: Yes (Death, Life-Threatening, Other)
  Sender: ALEXION PHARMACEUTICALS
  Company Number: JP-ASTRAZENECA-250047849_013120_P_1

PATIENT
  Age: 64 Year
  Sex: Female
  Weight: 36.9 kg

DRUGS (62)
  1. IMFINZI [Suspect]
     Active Substance: DURVALUMAB
     Indication: Non-small cell lung cancer
     Dosage: 1500 MILLIGRAM, Q4W
  2. IMFINZI [Suspect]
     Active Substance: DURVALUMAB
     Dosage: 500 MILLIGRAM
     Route: 065
  3. IMFINZI [Suspect]
     Active Substance: DURVALUMAB
     Dosage: 500 MILLIGRAM
     Route: 065
  4. IMFINZI [Suspect]
     Active Substance: DURVALUMAB
     Dosage: 500 MILLIGRAM
     Route: 065
  5. IMFINZI [Suspect]
     Active Substance: DURVALUMAB
     Dosage: 500 MILLIGRAM
     Route: 065
  6. IMJUDO [Suspect]
     Active Substance: TREMELIMUMAB\TREMELIMUMAB-ACTL
     Indication: Non-small cell lung cancer
     Dosage: 75 MILLIGRAM, Q4W
  7. IMJUDO [Suspect]
     Active Substance: TREMELIMUMAB\TREMELIMUMAB-ACTL
     Dosage: 25 MILLIGRAM
     Route: 065
  8. IMJUDO [Suspect]
     Active Substance: TREMELIMUMAB\TREMELIMUMAB-ACTL
     Dosage: 25 MILLIGRAM
     Route: 065
  9. IMJUDO [Suspect]
     Active Substance: TREMELIMUMAB\TREMELIMUMAB-ACTL
     Dosage: 25 MILLIGRAM
     Route: 065
  10. IMJUDO [Suspect]
     Active Substance: TREMELIMUMAB\TREMELIMUMAB-ACTL
     Dosage: 25 MILLIGRAM
     Route: 065
  11. ABRAXANE [Concomitant]
     Active Substance: PACLITAXEL
     Indication: Lung neoplasm malignant
     Dosage: 115 MILLIGRAM
     Dates: start: 20250210, end: 20250210
  12. ABRAXANE [Concomitant]
     Active Substance: PACLITAXEL
     Dosage: 90 MILLIGRAM
     Dates: start: 20250303, end: 20250303
  13. ABRAXANE [Concomitant]
     Active Substance: PACLITAXEL
     Dosage: 115 MILLIGRAM
     Dates: start: 20250218, end: 20250218
  14. ABRAXANE [Concomitant]
     Active Substance: PACLITAXEL
     Dosage: 90 MILLIGRAM
     Dates: start: 20250325, end: 20250325
  15. ABRAXANE [Concomitant]
     Active Substance: PACLITAXEL
     Dosage: 60 MILLIGRAM
     Dates: start: 20250415, end: 20250415
  16. ABRAXANE [Concomitant]
     Active Substance: PACLITAXEL
     Dosage: 60 MILLIGRAM
     Dates: start: 20250430, end: 20250430
  17. CARBOPLATIN [Concomitant]
     Active Substance: CARBOPLATIN
     Indication: Lung neoplasm malignant
     Dosage: 500 MILLIGRAM
     Dates: start: 20250210, end: 20250210
  18. CARBOPLATIN [Concomitant]
     Active Substance: CARBOPLATIN
     Dosage: 330 MILLIGRAM, QD
     Dates: start: 20250303, end: 20250303
  19. CARBOPLATIN [Concomitant]
     Active Substance: CARBOPLATIN
     Dosage: 330 MILLIGRAM, QD
     Dates: start: 20250325, end: 20250325
  20. CARBOPLATIN [Concomitant]
     Active Substance: CARBOPLATIN
     Dosage: 330 MILLIGRAM, QD
     Dates: start: 20250415, end: 20250415
  21. CARBOPLATIN [Concomitant]
     Active Substance: CARBOPLATIN
     Dosage: UNK
  22. ZOMETA [Concomitant]
     Active Substance: ZOLEDRONIC ACID
     Indication: Metastases to bone
     Dosage: 4 MILLIGRAM, QD
     Dates: start: 20250304, end: 20250304
  23. ZOMETA [Concomitant]
     Active Substance: ZOLEDRONIC ACID
     Dosage: 4 MILLIGRAM, QD
     Dates: start: 20250325, end: 20250325
  24. ZOMETA [Concomitant]
     Active Substance: ZOLEDRONIC ACID
     Dosage: 4 MILLIGRAM, QD
     Dates: start: 20250416, end: 20250416
  25. AMBROXOL HYDROCHLORIDE [Concomitant]
     Active Substance: AMBROXOL HYDROCHLORIDE
     Dosage: 45 MILLIGRAM, QD
     Dates: end: 20250307
  26. LOXOPROFEN [Concomitant]
     Active Substance: LOXOPROFEN
     Dosage: 60 MILLIGRAM 3 TIMES A DAY
  27. REBAMIPIDE [Concomitant]
     Active Substance: REBAMIPIDE
     Dosage: 100 MILLIGRAM 3 TIMES A DAY
  28. SODIUM FERROUS CITRATE [Concomitant]
     Active Substance: SODIUM FERROUS CITRATE
     Dosage: 50 MILLIGRAM, QD
     Dates: start: 20250228
  29. TULOBUTEROL [Concomitant]
     Active Substance: TULOBUTEROL
     Dosage: 2 MILLIGRAM, QD
     Dates: end: 20250418
  30. Senega syrup [Concomitant]
     Dosage: 3 MILLILITER AS REQUIRED
     Dates: start: 20250206, end: 20250502
  31. CALONAL [Concomitant]
     Active Substance: ACETAMINOPHEN
     Dosage: 500 MILLIGRAM AS REQUIRED
  32. TRAMADOL [Concomitant]
     Active Substance: TRAMADOL
     Dosage: 24 MILLIGRAM 4 TIMES A DAY
     Dates: start: 20250207, end: 20250209
  33. TRAMADOL [Concomitant]
     Active Substance: TRAMADOL
     Dosage: 50 MILLIGRAM 4 TIMES A DAY
     Dates: start: 20250210, end: 20250404
  34. TRAMADOL [Concomitant]
     Active Substance: TRAMADOL
     Dosage: 25 MILLIGRAM 4 TIMES A DAY
     Dates: start: 20250405, end: 20250502
  35. BISOPROLOL [Concomitant]
     Active Substance: BISOPROLOL
     Dosage: 4 MILLIGRAM, QD
     Dates: start: 20250208
  36. Adona [Concomitant]
     Dosage: 30 MILLIGRAM 3TIMES A DAY
     Dates: start: 20250210, end: 20250502
  37. AMINO ACIDS\DEXTROSE\ELECTROLYTES NOS\VITAMINS [Concomitant]
     Active Substance: AMINO ACIDS\DEXTROSE\ELECTROLYTES NOS\VITAMINS
     Dosage: 500 MILLILITER, QD
     Dates: start: 20250210, end: 20250212
  38. AMINO ACIDS\DEXTROSE\ELECTROLYTES NOS\VITAMINS [Concomitant]
     Active Substance: AMINO ACIDS\DEXTROSE\ELECTROLYTES NOS\VITAMINS
     Dosage: 500 MILLILITER, QD
     Dates: start: 20250214, end: 20250214
  39. AMINO ACIDS\DEXTROSE\ELECTROLYTES NOS\VITAMINS [Concomitant]
     Active Substance: AMINO ACIDS\DEXTROSE\ELECTROLYTES NOS\VITAMINS
     Dosage: 500 MILLILITER, QD
     Dates: start: 20250309, end: 20250309
  40. AMINO ACIDS\DEXTROSE\ELECTROLYTES NOS\VITAMINS [Concomitant]
     Active Substance: AMINO ACIDS\DEXTROSE\ELECTROLYTES NOS\VITAMINS
     Dosage: 500 MILLILITER, QD
     Dates: start: 20250313, end: 20250313
  41. AMINO ACIDS\DEXTROSE\ELECTROLYTES NOS\VITAMINS [Concomitant]
     Active Substance: AMINO ACIDS\DEXTROSE\ELECTROLYTES NOS\VITAMINS
     Dosage: 500 MILLILITER, QD
     Dates: start: 20250314, end: 20250316
  42. AMINO ACIDS\DEXTROSE\ELECTROLYTES NOS\VITAMINS [Concomitant]
     Active Substance: AMINO ACIDS\DEXTROSE\ELECTROLYTES NOS\VITAMINS
     Dosage: 500 MILLILITER, QD
     Dates: start: 20250405, end: 20250405
  43. RAMOSETRON HYDROCHLORIDE [Concomitant]
     Active Substance: RAMOSETRON HYDROCHLORIDE
     Dosage: 0.1 MILLIGRAM
     Dates: start: 20250211, end: 20250214
  44. RAMOSETRON HYDROCHLORIDE [Concomitant]
     Active Substance: RAMOSETRON HYDROCHLORIDE
     Dosage: 0.1 MILLIGRAM
     Dates: start: 20250304, end: 20250307
  45. NORVASC [Concomitant]
     Active Substance: AMLODIPINE BESYLATE
     Dosage: 2.5 MILLIGRAM, QD
     Dates: start: 20250212, end: 20250220
  46. POLARAMINE [Concomitant]
     Active Substance: DEXCHLORPHENIRAMINE MALEATE
  47. DIPHENHYDRAMINE [Concomitant]
     Active Substance: DIPHENHYDRAMINE
  48. AUGMENTIN [Concomitant]
     Active Substance: AMOXICILLIN\CLAVULANATE POTASSIUM
  49. FLURBIPROFEN AXETIL [Concomitant]
     Active Substance: FLURBIPROFEN AXETIL
     Dosage: 50 MILLIGRAM, QD
     Dates: start: 20250225, end: 20250225
  50. FLURBIPROFEN AXETIL [Concomitant]
     Active Substance: FLURBIPROFEN AXETIL
     Dosage: 50 MILLIGRAM, QD
     Dates: start: 20250324, end: 20250324
  51. TRANSAMIN [Concomitant]
     Active Substance: TRANEXAMIC ACID
  52. AMBROXOL HYDROCHLORIDE [Concomitant]
     Active Substance: AMBROXOL HYDROCHLORIDE
  53. ACETAMINOPHEN [Concomitant]
     Active Substance: ACETAMINOPHEN
     Dosage: 1000 MILLIGRAM, BID
     Dates: start: 20250312, end: 20250312
  54. ACETAMINOPHEN [Concomitant]
     Active Substance: ACETAMINOPHEN
     Dosage: 1000 MILLIGRAM, BID
     Dates: start: 20250313, end: 20250313
  55. ACETAMINOPHEN [Concomitant]
     Active Substance: ACETAMINOPHEN
     Dosage: 1000 MILLIGRAM, BID
     Dates: start: 20250405, end: 20250405
  56. NAPROXEN SODIUM [Concomitant]
     Active Substance: NAPROXEN SODIUM
  57. PRIMPERAN [Concomitant]
     Active Substance: METOCLOPRAMIDE HYDROCHLORIDE
  58. PENTAZOCINE [Concomitant]
     Active Substance: PENTAZOCINE
  59. CEFTRIAXONE [Concomitant]
     Active Substance: CEFTRIAXONE
  60. AMPICILLIN SODIUM\SULBACTAM SODIUM [Concomitant]
     Active Substance: AMPICILLIN SODIUM\SULBACTAM SODIUM
     Indication: Pneumonia
     Dosage: 1.5 GRAM 3 TIMES A DAY
     Dates: start: 20250405, end: 20250411
  61. OLMESARTAN MEDOXOMIL [Concomitant]
     Active Substance: OLMESARTAN MEDOXOMIL
     Indication: Hypertension
     Dosage: 10 MILLIGRAM, QD
     Dates: start: 20250413, end: 20250502
  62. CARBOCYSTEINE [Concomitant]
     Active Substance: CARBOCYSTEINE
     Dosage: 250 MILLIGRAM 3 TIMES A DAY

REACTIONS (10)
  - Haemoptysis [Fatal]
  - Neutropenia [Not Recovered/Not Resolved]
  - Anaemia [Unknown]
  - Tumour necrosis [Unknown]
  - Neuropathy peripheral [Not Recovered/Not Resolved]
  - Peripheral swelling [Recovered/Resolved]
  - Arthralgia [Recovered/Resolved]
  - Flushing [Unknown]
  - Pyrexia [Unknown]
  - Pruritus [Not Recovered/Not Resolved]

NARRATIVE: CASE EVENT DATE: 20250405
